FAERS Safety Report 4986137-7 (Version None)
Quarter: 2006Q2

REPORT INFORMATION
  Report Type: 
  Country: None (occurrence: None)
  Receive Date: 20060428
  Receipt Date: 20060417
  Transmission Date: 20061013
  Serious: Yes (Hospitalization)
  Sender: FDA-Public Use
  Company Number: US-JNJFOC-20060404705

PATIENT
  Sex: Male
  Weight: 46.27 kg

DRUGS (9)
  1. DURAGESIC-100 [Suspect]
     Route: 062
  2. ENBREL [Concomitant]
     Indication: BEHCET'S SYNDROME
     Route: 058
  3. PREVACID [Concomitant]
     Route: 048
  4. GAS-X [Concomitant]
     Route: 048
  5. MYLANTA [Concomitant]
     Dosage: 6 TABLESPOONS IN 24 HOURS, AS NEEDED, ORAL
     Route: 048
  6. ORAPRED [Concomitant]
     Indication: BEHCET'S SYNDROME
     Dosage: ^18 MG,^ 15 MG/ 5 ML, 6 ML IN 24 HOURS
     Route: 048
  7. CALCIUM WITH VITAMIN D [Concomitant]
     Route: 048
  8. CALCIUM WITH VITAMIN D [Concomitant]
     Route: 048
  9. CALCIUM WITH VITAMIN D [Concomitant]
     Indication: NUTRITIONAL SUPPORT
     Route: 048

REACTIONS (4)
  - BEHCET'S SYNDROME [None]
  - DRUG INEFFECTIVE [None]
  - GASTROOESOPHAGEAL REFLUX DISEASE [None]
  - PHARMACEUTICAL PRODUCT COMPLAINT [None]
